FAERS Safety Report 7967635-0 (Version None)
Quarter: 2011Q4

REPORT INFORMATION
  Report Type: 
  Country: None (occurrence: None)
  Receive Date: 20111209
  Receipt Date: 20111204
  Transmission Date: 20120403
  Serious: Yes (Hospitalization, Other)
  Sender: FDA-Public Use
  Company Number: US-AMGEN-USASP2011064380

PATIENT
  Age: 67 Year
  Sex: Female

DRUGS (1)
  1. ENBREL [Suspect]
     Indication: RHEUMATOID ARTHRITIS
     Dosage: 50 MG, QWK
     Dates: start: 20110628, end: 20110801

REACTIONS (6)
  - ARRHYTHMIA [None]
  - EYE PAIN [None]
  - LACRIMATION INCREASED [None]
  - LIP SWELLING [None]
  - PHOTOSENSITIVITY REACTION [None]
  - SWOLLEN TONGUE [None]
